FAERS Safety Report 6937641-3 (Version None)
Quarter: 2010Q3

REPORT INFORMATION
  Report Type: 
  Country: None (occurrence: None)
  Receive Date: 20100820
  Receipt Date: 20100820
  Transmission Date: 20110219
  Serious: Yes (Life-Threatening, Other)
  Sender: FDA-Public Use
  Company Number: None

PATIENT
  Age: 66 Year
  Sex: Female
  Weight: 81.8 kg

DRUGS (1)
  1. ARMOUR THYROID 1GR{60MG} FOREST [Suspect]
     Indication: HYPOTHYROIDISM
     Dosage: 180 MG 180 MG AM BY MOUTH
     Route: 048
     Dates: start: 19570101, end: 20100101

REACTIONS (12)
  - ALOPECIA [None]
  - DRUG INEFFECTIVE [None]
  - FATIGUE [None]
  - GASTRIC DISORDER [None]
  - GASTROOESOPHAGEAL REFLUX DISEASE [None]
  - MALAISE [None]
  - NAUSEA [None]
  - PRODUCT ODOUR ABNORMAL [None]
  - PRODUCT SUBSTITUTION ISSUE [None]
  - SOMNOLENCE [None]
  - THYROID DISORDER [None]
  - WEIGHT INCREASED [None]
